FAERS Safety Report 4451415-7 (Version None)
Quarter: 2004Q3

REPORT INFORMATION
  Report Type: 
  Country: None (occurrence: None)
  Receive Date: 20040916
  Receipt Date: 20040902
  Transmission Date: 20050211
  Serious: Yes (Death)
  Sender: FDA-Public Use
  Company Number: JP-JNJFOC-20031105279

PATIENT
  Sex: Female

DRUGS (5)
  1. FENTANYL [Suspect]
     Indication: CANCER PAIN
     Route: 062
     Dates: start: 20031104
  2. MORPHINE HYDROCHLORIDE [Concomitant]
     Dates: start: 20031111
  3. MORPHINE HYDROCHLORIDE [Concomitant]
     Dates: start: 20031111
  4. MORPHINE HYDROCHLORIDE [Concomitant]
     Dates: start: 20031111
  5. BETAMETHASONE SODIUM PHOSPHATE [Concomitant]
     Route: 030
     Dates: start: 20031114

REACTIONS (2)
  - COLON CANCER [None]
  - MALIGNANT NEOPLASM PROGRESSION [None]
